FAERS Safety Report 11037539 (Version 2)
Quarter: 2015Q2

REPORT INFORMATION
  Report Type: Spontaneous
  Country: US (occurrence: None)
  Receive Date: 20150414
  Receipt Date: 20150526
  Transmission Date: 20150821
  Serious: Yes (Life-Threatening, Hospitalization, Other)
  Sender: FDA-Public Use
  Company Number: ADR-2015-00695

PATIENT
  Age: 27 Year
  Sex: Male

DRUGS (1)
  1. GABALON INTRATHECAL [Suspect]
     Active Substance: BACLOFEN
     Indication: CEREBROVASCULAR DISORDER
     Dosage: 250 MCG/DAY

REACTIONS (5)
  - Disseminated intravascular coagulation [None]
  - Urinary tract infection [None]
  - Cardio-respiratory arrest [None]
  - Sepsis [None]
  - Necrotising fasciitis [None]

NARRATIVE: CASE EVENT DATE: 20150406
